FAERS Safety Report 6909089-9 (Version None)
Quarter: 2010Q3

REPORT INFORMATION
  Report Type: 
  Country: None (occurrence: None)
  Receive Date: 20100716
  Receipt Date: 20081217
  Transmission Date: 20110219
  Serious: Yes (Death)
  Sender: FDA-Public Use
  Company Number: 2008094031

PATIENT
  Age: 47 Year
  Sex: Male

DRUGS (2)
  1. CELEBREX [Suspect]
     Indication: SCROTAL PAIN
     Dosage: 200 MG, 1X/DAY, ORAL
     Route: 048
  2. ACE INHIBITOR NOS [Concomitant]

REACTIONS (1)
  - MYOCARDIAL INFARCTION [None]
